FAERS Safety Report 10240782 (Version 2)
Quarter: 2014Q3

REPORT INFORMATION
  Report Type: Spontaneous
  Country: US (occurrence: US)
  Receive Date: 20140617
  Receipt Date: 20140711
  Transmission Date: 20150326
  Serious: No
  Sender: FDA-Public Use
  Company Number: US-PFIZER INC-2014164264

PATIENT
  Age: 65 Year
  Sex: Male
  Weight: 89.34 kg

DRUGS (5)
  1. LYRICA [Suspect]
     Active Substance: PREGABALIN
     Indication: NEURALGIA
     Dosage: 200 MG, 3X/DAY
     Route: 048
     Dates: start: 2011
  2. LYRICA [Suspect]
     Active Substance: PREGABALIN
     Dosage: 200 MG, 3X/DAY
     Route: 048
  3. CELEBREX [Concomitant]
     Active Substance: CELECOXIB
     Dosage: UNK
  4. LYRICA [Suspect]
     Active Substance: PREGABALIN
     Indication: SPINAL CORD INJURY
     Dosage: 200 MG, 2X/DAY
     Route: 048
  5. LYRICA [Suspect]
     Active Substance: PREGABALIN
     Dosage: 200 MG, 1X/DAY
     Route: 048

REACTIONS (10)
  - Depression [Recovered/Resolved]
  - Dizziness [Unknown]
  - Feeling abnormal [Recovered/Resolved]
  - Aggression [Unknown]
  - Thinking abnormal [Unknown]
  - Anger [Recovered/Resolved]
  - Social avoidant behaviour [Recovered/Resolved]
  - Malaise [Recovered/Resolved]
  - Ocular hyperaemia [Unknown]
  - Drug ineffective [Unknown]
